FAERS Safety Report 6780404-2 (Version None)
Quarter: 2010Q2

REPORT INFORMATION
  Report Type: 
  Country: None (occurrence: None)
  Receive Date: 20100619
  Receipt Date: 20100616
  Transmission Date: 20101027
  Serious: No
  Sender: FDA-Public Use
  Company Number: US-RB-007521-10

PATIENT
  Age: 55 Year
  Sex: Male

DRUGS (3)
  1. SUBUTEX [Suspect]
     Route: 060
     Dates: start: 20100501, end: 20100501
  2. SUBOXONE [Suspect]
     Route: 060
     Dates: start: 20100101, end: 20100501
  3. SUBOXONE [Suspect]
     Dosage: TAKES 2 - 4 MG DAILY.
     Route: 060
     Dates: start: 20100501

REACTIONS (4)
  - DRUG DEPENDENCE [None]
  - DRUG WITHDRAWAL SYNDROME [None]
  - ERYTHEMA [None]
  - PANIC ATTACK [None]
